FAERS Safety Report 7231179-4 (Version None)
Quarter: 2011Q1

REPORT INFORMATION
  Report Type: 
  Country: None (occurrence: None)
  Receive Date: 20110118
  Receipt Date: 20110113
  Transmission Date: 20110831
  Serious: Yes (Hospitalization)
  Sender: FDA-Public Use
  Company Number: A0898132A

PATIENT
  Age: 41 Year
  Sex: Female
  Weight: 51.1 kg

DRUGS (22)
  1. AXITINIB [Suspect]
     Indication: COLORECTAL CANCER
     Dosage: 10MG TWICE PER DAY
     Route: 048
     Dates: start: 20101023
  2. PALONOSETRON [Concomitant]
     Dates: start: 20101108
  3. CEFTRIAXONE [Concomitant]
     Dates: start: 20101029, end: 20101031
  4. IRINOTECAN HCL [Suspect]
     Dosage: 232MG EVERY TWO WEEKS
     Route: 042
     Dates: start: 20101108
  5. WELLCOVORIN [Suspect]
     Indication: COLORECTAL CANCER
     Dosage: 600MG EVERY TWO WEEKS
     Route: 042
     Dates: start: 20101108
  6. ATIVAN [Concomitant]
     Dates: start: 20080101
  7. SYNTHROID [Concomitant]
     Dates: start: 20101101
  8. ALBUMIN (HUMAN) [Concomitant]
     Dates: start: 20101031, end: 20101031
  9. NYSTATIN [Concomitant]
     Dates: start: 20101108
  10. COMPAZINE [Concomitant]
     Dates: start: 20101109
  11. MSIR [Suspect]
     Dates: start: 20100901
  12. MIRALAX [Concomitant]
     Dates: start: 20101029
  13. ATROPINE [Concomitant]
     Dates: start: 20101108
  14. DECADRON [Concomitant]
     Dates: start: 20101108
  15. ONDANSETRON [Suspect]
     Dates: start: 20101029
  16. ADRUCIL [Suspect]
     Indication: COLORECTAL CANCER
     Dosage: 600MG EVERY TWO WEEKS
     Route: 042
     Dates: start: 20101108
  17. MS CONTIN [Suspect]
     Dates: start: 20100901
  18. SENOKOT [Concomitant]
     Dates: start: 20100901
  19. FLUIDS [Concomitant]
     Route: 042
  20. SCOPOLAMINE [Concomitant]
     Dates: start: 20101029, end: 20101101
  21. BISACODYL [Concomitant]
     Dates: start: 20101029, end: 20101101
  22. DILAUDID [Concomitant]
     Dates: start: 20101029, end: 20101029

REACTIONS (2)
  - ABDOMINAL PAIN [None]
  - DYSPNOEA [None]
